FAERS Safety Report 8693190 (Version 2)
Quarter: 2012Q4

REPORT INFORMATION
  Report Type: 
  Country: US (occurrence: US)
  Receive Date: 20120730
  Receipt Date: 20121002
  Transmission Date: 20130627
  Serious: Yes (Death, Hospitalization)
  Sender: FDA-Public Use
  Company Number: US-B.I. PHARMACEUTICALS,INC./RIDGEFIELD-2012-BP-17048BP

PATIENT
  Age: 8 None
  Sex: Female

DRUGS (4)
  1. PRADAXA [Suspect]
     Indication: CEREBROVASCULAR ACCIDENT PROPHYLAXIS
     Dosage: 300 mg
     Route: 048
     Dates: start: 20120624
  2. PRADAXA [Suspect]
     Indication: ATRIAL FIBRILLATION
  3. BETA BLOCKERS [Concomitant]
  4. ANTI-DEPRESSANT [Concomitant]

REACTIONS (1)
  - Gastrointestinal haemorrhage [Fatal]
